FAERS Safety Report 7032386-6 (Version None)
Quarter: 2010Q4

REPORT INFORMATION
  Report Type: 
  Country: None (occurrence: None)
  Receive Date: 20101007
  Receipt Date: 20100201
  Transmission Date: 20110411
  Serious: No
  Sender: FDA-Public Use
  Company Number: US-MYLANLABS-2010S1001792

PATIENT
  Age: 41 None
  Sex: Female

DRUGS (2)
  1. DICYCLOMINE HYDROCHLORIDE [Suspect]
     Indication: IRRITABLE BOWEL SYNDROME
     Route: 048
     Dates: start: 20100101
  2. NEXIUM [Concomitant]

REACTIONS (1)
  - BLEPHAROSPASM [None]
